FAERS Safety Report 7555556-7 (Version None)
Quarter: 2011Q2

REPORT INFORMATION
  Report Type: 
  Country: None (occurrence: None)
  Receive Date: 20110617
  Receipt Date: 20050331
  Transmission Date: 20111010
  Serious: Yes (Hospitalization)
  Sender: FDA-Public Use
  Company Number: PHHO2005JP05460

PATIENT
  Sex: Male

DRUGS (5)
  1. SALOBEL [Concomitant]
     Dosage: UNKNOWN
  2. CANDESARTAN CILEXETIL [Concomitant]
     Dosage: UNKNOWN
  3. LOCHOLEST [Suspect]
     Indication: HYPERCHOLESTEROLAEMIA
     Dosage: 20 MG, QD
     Route: 048
     Dates: start: 20020223
  4. NORVASC [Concomitant]
     Dosage: UNKNOWN
  5. BENECID [Concomitant]
     Dosage: UNKNOWN

REACTIONS (2)
  - PLEURISY [None]
  - SUBDIAPHRAGMATIC ABSCESS [None]
